FAERS Safety Report 17877885 (Version 1)
Quarter: 2020Q2

REPORT INFORMATION
  Report Type: Spontaneous
  Country: DE (occurrence: DE)
  Receive Date: 20200610
  Receipt Date: 20200610
  Transmission Date: 20200714
  Serious: Yes (Other)
  Sender: FDA-Public Use
  Company Number: DE-HORMOSAN PHARMA GMBH-2020-02675

PATIENT
  Sex: Male
  Weight: 123 kg

DRUGS (1)
  1. TADALAFIL-HORMOSAN FILMTABLETTEN [Suspect]
     Active Substance: TADALAFIL
     Indication: MICTURITION URGENCY
     Dosage: 1 DOSAGE FORM, QD
     Route: 065
     Dates: start: 20190320

REACTIONS (3)
  - Rhinorrhoea [Unknown]
  - Off label use [Unknown]
  - Bronchial obstruction [Unknown]

NARRATIVE: CASE EVENT DATE: 20190320
